FAERS Safety Report 9523207 (Version 1)
Quarter: 2013Q3

REPORT INFORMATION
  Report Type: Spontaneous
  Country: DE (occurrence: DE)
  Receive Date: 20130913
  Receipt Date: 20130913
  Transmission Date: 20140515
  Serious: Yes (Disabling)
  Sender: FDA-Public Use
  Company Number: DE-GLAXOSMITHKLINE-D0080942A

PATIENT
  Age: 68 Year
  Sex: Female

DRUGS (3)
  1. AVAMYS [Suspect]
     Indication: CONJUNCTIVITIS ALLERGIC
     Route: 045
     Dates: start: 20130613, end: 20130826
  2. ANTIHISTAMINES [Concomitant]
     Route: 065
  3. VIVIDRIN EYE DROPS [Concomitant]
     Route: 065

REACTIONS (3)
  - Eyelid oedema [Recovering/Resolving]
  - Eyelid oedema [Recovering/Resolving]
  - Lacrimation increased [Recovering/Resolving]
